FAERS Safety Report 22599937 (Version 1)
Quarter: 2023Q2

REPORT INFORMATION
  Report Type: Spontaneous
  Country: JP (occurrence: JP)
  Receive Date: 20230614
  Receipt Date: 20230614
  Transmission Date: 20230721
  Serious: Yes (Other)
  Sender: FDA-Public Use
  Company Number: JP-PFIZER INC-PV202300069649

PATIENT
  Age: 7 Decade
  Sex: Male

DRUGS (1)
  1. LORBRENA [Suspect]
     Active Substance: LORLATINIB
     Dosage: UNK
     Route: 048

REACTIONS (4)
  - Sudden hearing loss [Not Recovered/Not Resolved]
  - Hyperlipidaemia [Unknown]
  - Liver function test increased [Unknown]
  - Oedema [Recovered/Resolved]
